FAERS Safety Report 7755715-4 (Version None)
Quarter: 2011Q3

REPORT INFORMATION
  Report Type: 
  Country: None (occurrence: None)
  Receive Date: 20110916
  Receipt Date: 20110907
  Transmission Date: 20111222
  Serious: No
  Sender: FDA-Public Use
  Company Number: PHEH2011US03705

PATIENT
  Sex: Male

DRUGS (3)
  1. ALLOPURINOL [Concomitant]
  2. TASIGNA [Suspect]
     Indication: CHRONIC MYELOID LEUKAEMIA
     Dosage: 300 MG, DAILY
     Route: 048
     Dates: start: 20110810
  3. COUMADIN [Concomitant]

REACTIONS (1)
  - PRURITUS [None]
